FAERS Safety Report 6692280-7 (Version None)
Quarter: 2010Q2

REPORT INFORMATION
  Report Type: 
  Country: None (occurrence: None)
  Receive Date: 20100422
  Receipt Date: 20100417
  Transmission Date: 20101027
  Serious: Yes (Death)
  Sender: FDA-Public Use
  Company Number: BR-SANOFI-AVENTIS-2010SA022504

PATIENT
  Age: 79 Year
  Sex: Male
  Weight: 84 kg

DRUGS (7)
  1. PLACEBO [Suspect]
     Indication: PROSTATE CANCER METASTATIC
     Route: 042
     Dates: start: 20091208, end: 20091208
  2. PLACEBO [Suspect]
     Route: 042
     Dates: start: 20100413, end: 20100413
  3. DOCETAXEL [Suspect]
     Indication: PROSTATE CANCER METASTATIC
     Route: 042
     Dates: start: 20091208, end: 20091208
  4. DOCETAXEL [Suspect]
     Route: 042
     Dates: start: 20100413, end: 20100413
  5. PREDNISONE TAB [Suspect]
     Indication: PROSTATE CANCER METASTATIC
     Route: 048
     Dates: start: 20091208, end: 20100413
  6. ENALAPRIL MALEATE [Concomitant]
     Dates: start: 20091001
  7. ACETYLSALICYLIC ACID [Concomitant]
     Dates: start: 20091001

REACTIONS (1)
  - SUDDEN DEATH [None]
